FAERS Safety Report 7747433-3 (Version None)
Quarter: 2011Q3

REPORT INFORMATION
  Report Type: 
  Country: None (occurrence: None)
  Receive Date: 20110913
  Receipt Date: 20110908
  Transmission Date: 20111222
  Serious: Yes (Other)
  Sender: FDA-Public Use
  Company Number: IT-GLAXOSMITHKLINE-B0746890A

PATIENT
  Sex: Female

DRUGS (1)
  1. CEFTAZIDIME [Suspect]
     Indication: PRODUCT USED FOR UNKNOWN INDICATION
     Route: 065
     Dates: start: 20110826, end: 20110826

REACTIONS (3)
  - RASH [None]
  - DYSPNOEA [None]
  - PRURITUS [None]
